FAERS Safety Report 4360549-7 (Version None)
Quarter: 2004Q2

REPORT INFORMATION
  Report Type: 
  Country: None (occurrence: None)
  Receive Date: 20040519
  Receipt Date: 20040408
  Transmission Date: 20050107
  Serious: Yes (Hospitalization)
  Sender: FDA-Public Use
  Company Number: JP-ROCHE-366969

PATIENT
  Age: 5 Year
  Sex: Male
  Weight: 20.2 kg

DRUGS (7)
  1. TAMIFLU [Suspect]
     Route: 048
     Dates: start: 20040227, end: 20040302
  2. ZADITEN [Concomitant]
     Route: 048
     Dates: start: 20040225
  3. ASVERIN [Concomitant]
     Route: 048
     Dates: start: 20040225, end: 20040303
  4. PERIACTIN [Concomitant]
     Route: 048
     Dates: start: 20040225, end: 20040303
  5. MUCODYNE [Concomitant]
     Route: 048
     Dates: start: 20040225, end: 20040303
  6. BERACHIN [Concomitant]
     Route: 048
     Dates: start: 20040225, end: 20040303
  7. CLARITH [Concomitant]
     Indication: BRONCHITIS
     Route: 048
     Dates: start: 20040301, end: 20040303

REACTIONS (7)
  - C-REACTIVE PROTEIN INCREASED [None]
  - DELUSION [None]
  - DIARRHOEA [None]
  - GASTROINTESTINAL DISORDER [None]
  - LEUKOPENIA [None]
  - NEUTROPHIL COUNT DECREASED [None]
  - THROMBOCYTOPENIA [None]
